FAERS Safety Report 19707337 (Version 2)
Quarter: 2021Q3

REPORT INFORMATION
  Report Type: Spontaneous
  Country: NL (occurrence: NL)
  Receive Date: 20210817
  Receipt Date: 20210903
  Transmission Date: 20211014
  Serious: Yes (Hospitalization, Other)
  Sender: FDA-Public Use
  Company Number: NL-TEVA-2021-NL-1942067

PATIENT
  Age: 57 Year
  Sex: Female

DRUGS (8)
  1. IPILIMUMAB [Suspect]
     Active Substance: IPILIMUMAB
     Indication: METASTATIC MALIGNANT MELANOMA
     Dosage: EVERY 3 WEEKS
     Route: 065
     Dates: start: 202002
  2. PREDNISONE. [Suspect]
     Active Substance: PREDNISONE
     Indication: LIVER FUNCTION TEST ABNORMAL
     Dosage: DOSE WAS REDUCED AND THEN INCREASED
     Route: 065
     Dates: start: 2020
  3. PREDNISONE. [Suspect]
     Active Substance: PREDNISONE
     Indication: LIVER FUNCTION TEST ABNORMAL
     Route: 065
     Dates: start: 2020
  4. DEXAMETHASONE. [Suspect]
     Active Substance: DEXAMETHASONE
     Indication: HAEMOPHAGOCYTIC LYMPHOHISTIOCYTOSIS
     Route: 048
     Dates: start: 2020
  5. DEXAMETHASONE. [Suspect]
     Active Substance: DEXAMETHASONE
     Indication: HAEMOPHAGOCYTIC LYMPHOHISTIOCYTOSIS
     Route: 048
     Dates: start: 2020
  6. COTRIMOXAZOLE [Suspect]
     Active Substance: SULFAMETHOXAZOLE\TRIMETHOPRIM
     Indication: ANTIFUNGAL PROPHYLAXIS
     Route: 065
     Dates: start: 2020, end: 2020
  7. NIVOLUMAB [Suspect]
     Active Substance: NIVOLUMAB
     Indication: METASTATIC MALIGNANT MELANOMA
     Dosage: EVERY 3 WEEKS
     Route: 065
     Dates: start: 202002
  8. DEXAMETHASONE. [Suspect]
     Active Substance: DEXAMETHASONE
     Indication: HAEMOPHAGOCYTIC LYMPHOHISTIOCYTOSIS
     Route: 040
     Dates: start: 2020, end: 2020

REACTIONS (5)
  - Bone infarction [Unknown]
  - Mood swings [Unknown]
  - Haemophagocytic lymphohistiocytosis [Recovered/Resolved]
  - Drug reaction with eosinophilia and systemic symptoms [Recovering/Resolving]
  - Weight increased [Unknown]

NARRATIVE: CASE EVENT DATE: 2020
